FAERS Safety Report 4473313-5 (Version None)
Quarter: 2004Q4

REPORT INFORMATION
  Report Type: 
  Country: None (occurrence: None)
  Receive Date: 20041008
  Receipt Date: 20040929
  Transmission Date: 20050328
  Serious: Yes (Hospitalization, Other)
  Sender: FDA-Public Use
  Company Number: CA-SHR-04-022359

PATIENT
  Age: 55 Year
  Sex: Female

DRUGS (1)
  1. BETASERON [Suspect]
     Indication: MULTIPLE SCLEROSIS
     Dosage: 7.2 MIU, EVERY 2D, SUBCUTANEOUS
     Route: 058
     Dates: start: 20000214, end: 20040224

REACTIONS (8)
  - ADRENAL NEOPLASM [None]
  - BACK PAIN [None]
  - CARCINOMA [None]
  - COMA [None]
  - CONDITION AGGRAVATED [None]
  - DEPRESSION [None]
  - OVERDOSE [None]
  - SUICIDAL IDEATION [None]
